FAERS Safety Report 14596544 (Version 2)
Quarter: 2018Q1

REPORT INFORMATION
  Report Type: Spontaneous
  Country: GB (occurrence: GB)
  Receive Date: 20180304
  Receipt Date: 20180328
  Transmission Date: 20180509
  Serious: Yes (Hospitalization)
  Sender: FDA-Public Use
  Company Number: GB-DEXPHARM-20180120

PATIENT
  Age: 86 Year
  Sex: Female

DRUGS (11)
  1. LINAGLIPTIN [Suspect]
     Active Substance: LINAGLIPTIN
     Dosage: MORNING
  2. DIGOXIN. [Suspect]
     Active Substance: DIGOXIN
     Dosage: MORNING
  3. CETIRIZINE [Suspect]
     Active Substance: CETIRIZINE HYDROCHLORIDE
     Dosage: MORNING
  4. SIMVASTATIN. [Suspect]
     Active Substance: SIMVASTATIN
     Dosage: MORNING
  5. CANDESARTAN CILEXETIL. [Suspect]
     Active Substance: CANDESARTAN CILEXETIL
     Dosage: MORNING
  6. LEVOTHYROXINE SODIUM. [Suspect]
     Active Substance: LEVOTHYROXINE SODIUM
     Dosage: MORNING
  7. CANDESARTAN. [Suspect]
     Active Substance: CANDESARTAN
     Dosage: MORNING
  8. ISOSORBIDE. [Suspect]
     Active Substance: ISOSORBIDE
     Dosage: MORNING
  9. BISOPROLOL [Suspect]
     Active Substance: BISOPROLOL
  10. APIXABAN [Suspect]
     Active Substance: APIXABAN
     Indication: ATRIAL FIBRILLATION
     Dates: end: 20180207
  11. LANSOPRAZOLE. [Suspect]
     Active Substance: LANSOPRAZOLE
     Dosage: MORNING

REACTIONS (1)
  - Subarachnoid haemorrhage [Recovered/Resolved with Sequelae]
